APPROVED DRUG PRODUCT: DROSPIRENONE AND ETHINYL ESTRADIOL
Active Ingredient: DROSPIRENONE; ETHINYL ESTRADIOL
Strength: 3MG;0.02MG
Dosage Form/Route: TABLET;ORAL
Application: A078515 | Product #001
Applicant: BARR LABORATORIES INC
Approved: Mar 30, 2009 | RLD: No | RS: No | Type: DISCN